FAERS Safety Report 16967295 (Version 1)
Quarter: 2019Q4

REPORT INFORMATION
  Report Type: Spontaneous
  Country: US (occurrence: US)
  Receive Date: 20191028
  Receipt Date: 20191028
  Transmission Date: 20200122
  Serious: Yes (Other)
  Sender: FDA-Public Use
  Company Number: US-SHIRE-US201935517

PATIENT

DRUGS (6)
  1. 433 (CARBAMAZEPINE) [Suspect]
     Active Substance: CARBAMAZEPINE
     Indication: ISODICENTRIC CHROMOSOME 15 SYNDROME
     Dosage: UNK
     Route: 065
  2. VALPROATE [Concomitant]
     Active Substance: VALPROIC ACID
     Indication: PRODUCT USED FOR UNKNOWN INDICATION
  3. RISPERIDONE. [Concomitant]
     Active Substance: RISPERIDONE
     Indication: SEIZURE
  4. OXCARBAZEPINE. [Concomitant]
     Active Substance: OXCARBAZEPINE
     Indication: SEIZURE
  5. LAMOTRIGINE. [Concomitant]
     Active Substance: LAMOTRIGINE
     Indication: PRODUCT USED FOR UNKNOWN INDICATION
  6. LITHIUM. [Concomitant]
     Active Substance: LITHIUM
     Indication: PRODUCT USED FOR UNKNOWN INDICATION

REACTIONS (2)
  - Neutropenia [Unknown]
  - Intentional product use issue [Unknown]
